FAERS Safety Report 5878017-X (Version None)
Quarter: 2008Q3

REPORT INFORMATION
  Report Type: 
  Country: None (occurrence: None)
  Receive Date: 20080911
  Receipt Date: 20080904
  Transmission Date: 20090109
  Serious: Yes (Hospitalization)
  Sender: FDA-Public Use
  Company Number: GB-TEVA-177094ISR

PATIENT
  Age: 45 Year
  Sex: Male

DRUGS (1)
  1. MESALAMINE [Suspect]

REACTIONS (3)
  - EOSINOPHILIA [None]
  - JAUNDICE [None]
  - THROMBOCYTOPENIA [None]
